FAERS Safety Report 9464144 (Version 1)
Quarter: 2013Q3

REPORT INFORMATION
  Report Type: Report from Study
  Country: US (occurrence: US)
  Receive Date: 20130819
  Receipt Date: 20130819
  Transmission Date: 20140515
  Serious: Yes (Hospitalization, Other)
  Sender: FDA-Public Use
  Company Number: US-ELI_LILLY_AND_COMPANY-US201308001692

PATIENT
  Age: 65 Year
  Sex: Female
  Weight: 65.31 kg

DRUGS (8)
  1. DULOXETINE HYDROCHLORIDE [Suspect]
     Indication: DEPRESSION
     Dosage: UNK, UNKNOWN
  2. HUMIRA [Suspect]
     Indication: CROHN^S DISEASE
     Dosage: 40 MG, 1 IN 2 WK
     Dates: start: 2012
  3. HUMIRA [Suspect]
     Dosage: 40 MG, WEEKLY (1/W)
     Dates: end: 2013
  4. HUMIRA [Suspect]
     Dosage: 40 MG, 1 IN 2 WK
     Dates: start: 2013
  5. ETRAFON-D [Suspect]
     Indication: RESTLESS LEGS SYNDROME
     Dosage: UNK, UNKNOWN
     Dates: end: 201212
  6. PROZAC [Concomitant]
     Indication: DEPRESSION
     Dosage: UNK, UNKNOWN
  7. ATIVAN [Concomitant]
     Indication: DEPRESSION
     Dosage: UNK, UNKNOWN
  8. CELEBREX [Concomitant]
     Dosage: UNK, UNKNOWN

REACTIONS (16)
  - Transient ischaemic attack [Unknown]
  - Cerebrovascular accident [Unknown]
  - Intracranial aneurysm [Unknown]
  - Eczema [Recovering/Resolving]
  - Amnesia [Unknown]
  - Tremor [Recovered/Resolved]
  - Movement disorder [Recovered/Resolved]
  - Drooling [Recovered/Resolved]
  - Spinal compression fracture [Unknown]
  - Aphasia [Recovered/Resolved]
  - Hemiparesis [Unknown]
  - VIIth nerve paralysis [Unknown]
  - Fall [Recovered/Resolved]
  - Back pain [Unknown]
  - Tremor [Unknown]
  - Gait disturbance [Unknown]
